FAERS Safety Report 4650404-7 (Version None)
Quarter: 2005Q2

REPORT INFORMATION
  Report Type: 
  Country: None (occurrence: None)
  Receive Date: 20050429
  Receipt Date: 20050406
  Transmission Date: 20051028
  Serious: Yes (Other)
  Sender: FDA-Public Use
  Company Number: ENTC2005-0093

PATIENT
  Age: 62 Year
  Sex: Male

DRUGS (6)
  1. STALEVO 100 [Suspect]
     Indication: PARKINSON'S DISEASE
     Dosage: 50 MG QD ORAL
     Route: 048
     Dates: start: 20050322, end: 20050323
  2. PROLOPA [Concomitant]
  3. NIAR [Concomitant]
  4. SIFROL [Concomitant]
  5. BIPERIDEN HYDROCHLORIDE TAB [Concomitant]
  6. AMITRIPTYLINE [Concomitant]

REACTIONS (14)
  - AGITATION [None]
  - CHROMATURIA [None]
  - DIZZINESS [None]
  - HALLUCINATION [None]
  - HYPERHIDROSIS [None]
  - INSOMNIA [None]
  - LIMB DISCOMFORT [None]
  - MUSCLE RIGIDITY [None]
  - MUSCLE SPASMS [None]
  - NAUSEA [None]
  - NECK PAIN [None]
  - NERVOUSNESS [None]
  - SPEECH DISORDER [None]
  - TREMOR [None]
